FAERS Safety Report 9508244 (Version 2)
Quarter: 2013Q3

REPORT INFORMATION
  Report Type: Spontaneous
  Country: US (occurrence: US)
  Receive Date: 20130909
  Receipt Date: 20130909
  Transmission Date: 20140515
  Serious: No
  Sender: FDA-Public Use
  Company Number: US-PFIZER INC-2013128463

PATIENT
  Age: 62 Year
  Sex: Female

DRUGS (3)
  1. MOTRIN IB [Suspect]
     Dosage: UNK
     Route: 065
  2. BENADRYL [Suspect]
     Dosage: UNK
  3. ACTIFED [Suspect]
     Dosage: UNK

REACTIONS (3)
  - Drug hypersensitivity [Unknown]
  - Rash vesicular [Unknown]
  - Tachycardia [Unknown]
